FAERS Safety Report 7516499-8 (Version None)
Quarter: 2011Q2

REPORT INFORMATION
  Report Type: 
  Country: None (occurrence: None)
  Receive Date: 20110601
  Receipt Date: 20110523
  Transmission Date: 20111010
  Serious: Yes (Death, Hospitalization)
  Sender: FDA-Public Use
  Company Number: A0921710A

PATIENT
  Sex: Male

DRUGS (1)
  1. VOTRIENT [Suspect]
     Dosage: 200MG UNKNOWN
     Dates: start: 20110320, end: 20110328

REACTIONS (2)
  - INTESTINAL OBSTRUCTION [None]
  - DEATH [None]
